FAERS Safety Report 25142021 (Version 1)
Quarter: 2025Q1

REPORT INFORMATION
  Report Type: Spontaneous
  Country: NL (occurrence: NL)
  Receive Date: 20250331
  Receipt Date: 20250331
  Transmission Date: 20250409
  Serious: Yes (Hospitalization)
  Sender: JUBILANT
  Company Number: NL-JUBILANT CADISTA PHARMACEUTICALS-2025JUB00032

PATIENT
  Age: 85 Year
  Sex: Female

DRUGS (3)
  1. HYDROCHLOROTHIAZIDE [Suspect]
     Active Substance: HYDROCHLOROTHIAZIDE
     Indication: Hypertension
  2. CARVEDILOL [Suspect]
     Active Substance: CARVEDILOL
     Indication: Hypertension
  3. VALSARTAN [Suspect]
     Active Substance: VALSARTAN
     Indication: Hypertension

REACTIONS (1)
  - BRASH syndrome [Recovering/Resolving]
